FAERS Safety Report 6918570-8 (Version None)
Quarter: 2010Q3

REPORT INFORMATION
  Report Type: 
  Country: None (occurrence: None)
  Receive Date: 20100722
  Receipt Date: 20090817
  Transmission Date: 20110219
  Serious: Yes (Other)
  Sender: FDA-Public Use
  Company Number: CERZ-1000693

PATIENT
  Age: 75 Year
  Sex: Male
  Weight: 28.8 kg

DRUGS (7)
  1. CEREZYME [Suspect]
     Indication: GAUCHER'S DISEASE
     Dosage: 4500 U, Q2W, INTRAVENOUS
     Route: 042
     Dates: start: 19940207
  2. CEREZYME [Suspect]
  3. COUMADIN [Concomitant]
  4. DIGOXIN [Concomitant]
  5. FOSAMAX [Concomitant]
  6. CALCIUM AND ERGOCALCIFEROL (CALCIUM LACTATE, CALCIUM PHOSPHATE, ERGOCA [Concomitant]
  7. FISH OIL (FISH OIL) [Concomitant]

REACTIONS (1)
  - PULMONARY HYPERTENSION [None]
